FAERS Safety Report 14678390 (Version 1)
Quarter: 2018Q1

REPORT INFORMATION
  Report Type: Report from Study
  Country: US (occurrence: US)
  Receive Date: 20180326
  Receipt Date: 20180326
  Transmission Date: 20180509
  Serious: No
  Sender: FDA-Public Use
  Company Number: PHEH2018US010383

PATIENT
  Sex: Male

DRUGS (1)
  1. OMNITROP [Suspect]
     Active Substance: SOMATROPIN
     Indication: PRODUCT USED FOR UNKNOWN INDICATION
     Dosage: 2.7 MG, UNK
     Route: 058
     Dates: start: 2013

REACTIONS (2)
  - Device issue [Unknown]
  - Device breakage [Unknown]
